FAERS Safety Report 7070252-0 (Version None)
Quarter: 2010Q4

REPORT INFORMATION
  Report Type: 
  Country: None (occurrence: None)
  Receive Date: 20101028
  Receipt Date: 20101018
  Transmission Date: 20110411
  Serious: No
  Sender: FDA-Public Use
  Company Number: US-WYE-H18235610

PATIENT
  Age: 62 Year
  Sex: Female
  Weight: 81.72 kg

DRUGS (1)
  1. ADVIL COLD AND SINUS [Suspect]
     Indication: NASOPHARYNGITIS
     Route: 048
     Dates: start: 20101001, end: 20101001

REACTIONS (5)
  - EYELID OEDEMA [None]
  - HALLUCINATION [None]
  - HALLUCINATION, AUDITORY [None]
  - LIP SWELLING [None]
  - THROAT TIGHTNESS [None]
